FAERS Safety Report 10750639 (Version 1)
Quarter: 2015Q1

REPORT INFORMATION
  Report Type: Spontaneous
  Country: US (occurrence: None)
  Receive Date: 20150128
  Receipt Date: 20150128
  Transmission Date: 20150721
  Serious: Yes (Other)
  Sender: FDA-Public Use
  Company Number: A14-064-G

PATIENT
  Age: 63 Year
  Sex: Female

DRUGS (2)
  1. WDMX PLT RW DM D [Suspect]
     Active Substance: ALLERGENIC EXTRACTS
     Indication: IMMUNE TOLERANCE INDUCTION
     Dates: start: 20141023
  2. TMX CED C [Suspect]
     Active Substance: ALLERGENIC EXTRACTS
     Indication: IMMUNE TOLERANCE INDUCTION
     Dates: start: 20141023

REACTIONS (4)
  - Hypertensive emergency [None]
  - Injection site reaction [None]
  - Pharyngeal disorder [None]
  - Nasal congestion [None]

NARRATIVE: CASE EVENT DATE: 20141023
